FAERS Safety Report 24946463 (Version 2)
Quarter: 2025Q1

REPORT INFORMATION
  Report Type: Report from Study
  Country: US (occurrence: US)
  Receive Date: 20250210
  Receipt Date: 20250220
  Transmission Date: 20250408
  Serious: Yes (Other)
  Sender: ABBVIE
  Company Number: US-ABBVIE-6121261

PATIENT
  Age: 58 Year
  Sex: Female
  Weight: 80.285 kg

DRUGS (2)
  1. HUMIRA [Suspect]
     Active Substance: ADALIMUMAB
     Indication: Psoriasis
     Route: 058
     Dates: start: 20190822
  2. DUPIXENT [Concomitant]
     Active Substance: DUPILUMAB
     Indication: Dermatitis

REACTIONS (5)
  - Intervertebral disc protrusion [Recovered/Resolved]
  - Pruritus [Recovered/Resolved]
  - Stress [Recovered/Resolved]
  - Pain [Recovered/Resolved]
  - Back injury [Unknown]

NARRATIVE: CASE EVENT DATE: 20240601
